FAERS Safety Report 13691354 (Version 1)
Quarter: 2017Q2

REPORT INFORMATION
  Report Type: Spontaneous
  Country: US (occurrence: US)
  Receive Date: 20170626
  Receipt Date: 20170626
  Transmission Date: 20170830
  Serious: No
  Sender: FDA-Public Use
  Company Number: US-ROCHE-1043103

PATIENT
  Age: 77 Year
  Sex: Male
  Weight: 100.33 kg

DRUGS (2)
  1. INTEGRILIN [Concomitant]
     Active Substance: EPTIFIBATIDE
     Indication: MYOCARDIAL INFARCTION
  2. TNKASE [Suspect]
     Active Substance: TENECTEPLASE
     Indication: ACUTE MYOCARDIAL INFARCTION
     Route: 065
     Dates: start: 20120219

REACTIONS (1)
  - Enzyme abnormality [Unknown]

NARRATIVE: CASE EVENT DATE: 20120220
